FAERS Safety Report 22246919 (Version 2)
Quarter: 2023Q2

REPORT INFORMATION
  Report Type: Spontaneous
  Country: DE (occurrence: DE)
  Receive Date: 20230424
  Receipt Date: 20230501
  Transmission Date: 20230722
  Serious: Yes (Other)
  Sender: FDA-Public Use
  Company Number: DE-BAUSCHBL-2023BNL003408

PATIENT
  Age: 49 Year
  Sex: Female

DRUGS (2)
  1. GENTAMICIN SULFATE [Suspect]
     Active Substance: GENTAMICIN SULFATE
     Indication: Hordeolum
     Dosage: 5 TIMES A DAY
     Route: 065
  2. POSIFORMIN [Concomitant]
     Indication: Blepharitis

REACTIONS (5)
  - Ocular vasculitis [Recovering/Resolving]
  - Eye haemorrhage [Unknown]
  - Intraocular pressure increased [Unknown]
  - Instillation site irritation [Unknown]
  - Overdose [Unknown]
